FAERS Safety Report 16451358 (Version 8)
Quarter: 2020Q1

REPORT INFORMATION
  Report Type: Spontaneous
  Country: US (occurrence: US)
  Receive Date: 20190619
  Receipt Date: 20200107
  Transmission Date: 20200409
  Serious: Yes (Hospitalization, Other)
  Sender: FDA-Public Use
  Company Number: US-PFIZER INC-2019258125

PATIENT
  Age: 66 Year
  Sex: Female

DRUGS (1)
  1. LYRICA [Suspect]
     Active Substance: PREGABALIN
     Indication: NEURALGIA
     Dosage: 75 MG, 3X/DAY
     Dates: start: 201901

REACTIONS (8)
  - Ear infection [Unknown]
  - Product packaging issue [Unknown]
  - Skin laceration [Recovered/Resolved]
  - Balance disorder [Unknown]
  - General physical health deterioration [Recovered/Resolved]
  - Foot fracture [Recovered/Resolved]
  - Pain [Recovered/Resolved]
  - Localised oedema [Unknown]

NARRATIVE: CASE EVENT DATE: 2019
